FAERS Safety Report 4819033-6 (Version None)
Quarter: 2005Q4

REPORT INFORMATION
  Report Type: 
  Country: None (occurrence: None)
  Receive Date: 20051101
  Receipt Date: 20051014
  Transmission Date: 20060501
  Serious: Yes (Life-Threatening)
  Sender: FDA-Public Use
  Company Number: DSA_27299_2005

PATIENT
  Age: 10 Month
  Sex: Female

DRUGS (5)
  1. LORAZEPAM [Suspect]
     Indication: CONVULSION
     Dosage: 3 MG/KG Q DAY PO
     Route: 048
     Dates: start: 20050616
  2. MIDAZOLAM HCL [Suspect]
     Indication: CONVULSION
     Dosage: DF
     Dates: start: 20050101
  3. RAVONAL [Suspect]
     Indication: CONVULSION
     Dosage: DF Q DAY
     Dates: start: 20050614
  4. PHENOBAL [Concomitant]
  5. CLOBAZAM [Concomitant]

REACTIONS (1)
  - CARDIAC ARREST [None]
